FAERS Safety Report 5930668-X (Version None)
Quarter: 2008Q4

REPORT INFORMATION
  Report Type: 
  Country: None (occurrence: None)
  Receive Date: 20081007
  Receipt Date: 20040615
  Transmission Date: 20090506
  Serious: Yes (Other)
  Sender: FDA-Public Use
  Company Number: 20040033USST

PATIENT
  Age: 49 Year
  Sex: Male
  Weight: 75 kg

DRUGS (17)
  1. CARNITOR [Suspect]
     Indication: CARNITINE DEFICIENCY
     Dosage: 2 GM, TIW, INTRAVENOUS
     Route: 042
     Dates: start: 20040528, end: 20040611
  2. CARNITOR [Suspect]
     Indication: DIALYSIS
     Dosage: 2 GM, TIW, INTRAVENOUS
     Route: 042
     Dates: start: 20040528, end: 20040611
  3. ACTOS [Concomitant]
  4. NAPROXEN [Concomitant]
  5. HYDROCODONE [Concomitant]
  6. DOCUSATE [Concomitant]
  7. HYDROXYZINE [Concomitant]
  8. NEPHROVITE [Concomitant]
  9. PHENERGAN HCL [Concomitant]
  10. REGLAN [Concomitant]
  11. ASPIRIN [Concomitant]
  12. ZOCOR [Concomitant]
  13. PROTONIX [Concomitant]
  14. FLOMAX [Concomitant]
  15. EPOGEN [Concomitant]
  16. ZEMPLAR [Concomitant]
  17. MIRALAX [Concomitant]

REACTIONS (2)
  - NAUSEA [None]
  - VOMITING [None]
